FAERS Safety Report 5897629-0 (Version None)
Quarter: 2008Q3

REPORT INFORMATION
  Report Type: 
  Country: None (occurrence: None)
  Receive Date: 20080923
  Receipt Date: 20080915
  Transmission Date: 20090109
  Serious: No
  Sender: FDA-Public Use
  Company Number: B0515810A

PATIENT
  Age: 45 Year
  Sex: Female

DRUGS (3)
  1. LEXIVA [Suspect]
     Indication: DRUG USE FOR UNKNOWN INDICATION
     Dosage: 700 MG/TWICE PER DAY / ORAL
     Route: 048
     Dates: start: 20070110, end: 20070901
  2. RITONAVIR        (FORMULATION UNKNOWN) (RITONAVIR) [Suspect]
     Indication: DRUG USE FOR UNKNOWN INDICATION
     Dosage: 100 MG /TWICE PER DAY / ORAL
     Route: 048
     Dates: start: 20070110, end: 20070901
  3. DELAVIRDINE MESYLATE [Concomitant]

REACTIONS (8)
  - BACTERIAL INFECTION [None]
  - CALCULUS URETERIC [None]
  - CULTURE URINE POSITIVE [None]
  - DISEASE RECURRENCE [None]
  - GENERAL PHYSICAL HEALTH DETERIORATION [None]
  - HYDRONEPHROSIS [None]
  - NEPHROLITHIASIS [None]
  - URINARY TRACT INFECTION [None]
